FAERS Safety Report 10052205 (Version 2)
Quarter: 2014Q2

REPORT INFORMATION
  Report Type: Spontaneous
  Country: GB (occurrence: GB)
  Receive Date: 20140402
  Receipt Date: 20140402
  Transmission Date: 20141212
  Serious: Yes (Hospitalization, Other)
  Sender: FDA-Public Use
  Company Number: GB-AMGEN-GBRSP2014012384

PATIENT
  Age: 56 Year
  Sex: Female

DRUGS (2)
  1. NEULASTA [Suspect]
     Indication: BREAST CANCER
     Dosage: 6 MG, STAT
     Route: 058
     Dates: start: 20131204
  2. NEULASTA [Suspect]
     Indication: PROPHYLAXIS

REACTIONS (2)
  - Febrile neutropenia [Recovered/Resolved]
  - Drug ineffective [Unknown]
